FAERS Safety Report 8261181-5 (Version None)
Quarter: 2012Q2

REPORT INFORMATION
  Report Type: 
  Country: None (occurrence: None)
  Receive Date: 20120405
  Receipt Date: 20120329
  Transmission Date: 20120825
  Serious: Yes (Hospitalization)
  Sender: FDA-Public Use
  Company Number: US-BAYER-2012-031728

PATIENT
  Age: 51 Year
  Sex: Female

DRUGS (1)
  1. NEXAVAR [Suspect]
     Indication: HEPATIC NEOPLASM MALIGNANT
     Dosage: 200 MG, BID
     Route: 048
     Dates: start: 20111226, end: 20120326

REACTIONS (6)
  - HYPONATRAEMIA [None]
  - VOMITING [None]
  - PARAESTHESIA [None]
  - MENTAL STATUS CHANGES [None]
  - DIARRHOEA [None]
  - SPEECH DISORDER [None]
